FAERS Safety Report 4300004-3 (Version None)
Quarter: 2004Q1

REPORT INFORMATION
  Report Type: 
  Country: None (occurrence: None)
  Receive Date: 20040219
  Receipt Date: 20040219
  Transmission Date: 20041129
  Serious: Yes (Hospitalization)
  Sender: FDA-Public Use
  Company Number: None

PATIENT
  Age: 75 Year
  Sex: Male
  Weight: 68.0396 kg

DRUGS (4)
  1. ASPIRIN [Suspect]
     Indication: CEREBROVASCULAR ACCIDENT PROPHYLAXIS
     Dosage: 1 PO QD
     Route: 048
  2. DIGOXIN [Concomitant]
  3. DILTIAZEM [Concomitant]
  4. RISPERIDONE [Concomitant]

REACTIONS (7)
  - ABDOMINAL PAIN [None]
  - ARTHRITIS [None]
  - ASTHENIA [None]
  - HAEMATEMESIS [None]
  - MELAENA [None]
  - OESOPHAGITIS [None]
  - POLYP [None]
